FAERS Safety Report 12687399 (Version 8)
Quarter: 2016Q4

REPORT INFORMATION
  Report Type: Report from Study
  Country: IT (occurrence: IT)
  Receive Date: 20160825
  Receipt Date: 20161006
  Transmission Date: 20170207
  Serious: Yes (Hospitalization, Other)
  Sender: FDA-Public Use
  Company Number: IT-BIOGEN-2016BI00280270

PATIENT
  Age: 69 Week
  Sex: Male
  Weight: 11.15 kg

DRUGS (3)
  1. ALPROLIX [Suspect]
     Active Substance: EFTRENONACOG ALFA
     Route: 042
     Dates: start: 20160706
  2. ALPROLIX [Suspect]
     Active Substance: EFTRENONACOG ALFA
     Dosage: 780IU
     Route: 042
     Dates: start: 20160817, end: 20160817
  3. ALPROLIX [Suspect]
     Active Substance: EFTRENONACOG ALFA
     Indication: HAEMOPHILIA
     Dosage: 50IU/KG
     Route: 042
     Dates: start: 20160608

REACTIONS (2)
  - Hypersensitivity [Recovered/Resolved]
  - Factor IX inhibition [Not Recovered/Not Resolved]

NARRATIVE: CASE EVENT DATE: 20160817
